FAERS Safety Report 4985965-1 (Version None)
Quarter: 2006Q2

REPORT INFORMATION
  Report Type: 
  Country: None (occurrence: None)
  Receive Date: 20060428
  Receipt Date: 20060426
  Transmission Date: 20061013
  Serious: Yes (Other)
  Sender: FDA-Public Use
  Company Number: JP-AVENTIS-200611360JP

PATIENT
  Age: 79 Year
  Sex: Male

DRUGS (3)
  1. EUTENSIN [Suspect]
     Route: 048
     Dates: start: 20030301, end: 20030801
  2. LASIX [Suspect]
     Route: 048
     Dates: start: 20030301, end: 20030801
  3. UNKNOWN DRUG [Suspect]

REACTIONS (1)
  - TOXIC EPIDERMAL NECROLYSIS [None]
